FAERS Safety Report 24580711 (Version 1)
Quarter: 2024Q4

REPORT INFORMATION
  Report Type: Report from Study
  Country: US (occurrence: US)
  Receive Date: 20241105
  Receipt Date: 20241105
  Transmission Date: 20250115
  Serious: Yes (Hospitalization, Other)
  Sender: SUNOVION
  Company Number: US-SMPA-2024SPA004371

PATIENT

DRUGS (3)
  1. ORGOVYX [Suspect]
     Active Substance: RELUGOLIX
     Indication: Prostate cancer
     Dosage: 360 MG
     Route: 048
     Dates: start: 20240918, end: 20240918
  2. ORGOVYX [Suspect]
     Active Substance: RELUGOLIX
     Dosage: 120 MG, QD
     Route: 048
     Dates: start: 20240919
  3. ABIRATERONE [Concomitant]
     Active Substance: ABIRATERONE\ABIRATERONE ACETATE
     Indication: Prostate cancer
     Dosage: 1000 MG, QD
     Route: 065
     Dates: start: 20241009

REACTIONS (4)
  - Chest injury [Unknown]
  - Fall [Unknown]
  - Fatigue [Unknown]
  - Product dose omission issue [Unknown]
